FAERS Safety Report 8087055-0 (Version None)
Quarter: 2012Q1

REPORT INFORMATION
  Report Type: 
  Country: None (occurrence: None)
  Receive Date: 20120128
  Receipt Date: 20110614
  Transmission Date: 20120608
  Serious: Yes (Other)
  Sender: FDA-Public Use
  Company Number: US-ABBOTT-11P-163-0733078-00

PATIENT
  Sex: Female
  Weight: 80.358 kg

DRUGS (13)
  1. TOPAMAX [Suspect]
     Indication: BIPOLAR II DISORDER
  2. MORPHINE [Concomitant]
     Indication: PAIN
  3. ASPIRIN [Concomitant]
     Indication: CARDIOVASCULAR EVENT PROPHYLAXIS
  4. GEODONE [Concomitant]
     Indication: BIPOLAR II DISORDER
  5. MULTIPLE VITAMINS [Concomitant]
     Indication: VITAMIN SUPPLEMENTATION
  6. HUMIRA [Suspect]
     Indication: PSORIATIC ARTHROPATHY
     Dosage: TOOK TOTAL OF 4 DOSES
     Dates: start: 20080101, end: 20080101
  7. SOMA [Concomitant]
     Indication: PAIN
  8. CALCIUM WITH VITAMIN D [Concomitant]
     Indication: MINERAL SUPPLEMENTATION
  9. RAPTIVA [Suspect]
     Indication: PUSTULAR PSORIASIS
     Dates: end: 20080101
  10. TOPAMAX [Suspect]
     Indication: CLUSTER HEADACHE
  11. DALMANE [Concomitant]
     Indication: SLEEP DISORDER THERAPY
  12. KLONOPIN [Concomitant]
     Indication: ANXIETY
  13. NORCO [Concomitant]
     Indication: PAIN

REACTIONS (6)
  - POLYNEUROPATHY [None]
  - OEDEMA PERIPHERAL [None]
  - THROMBOSIS [None]
  - SKIN DISCOLOURATION [None]
  - MEMORY IMPAIRMENT [None]
  - BENIGN NEOPLASM OF BLADDER [None]
